FAERS Safety Report 16289040 (Version 2)
Quarter: 2024Q3

REPORT INFORMATION
  Report Type: Report from Study
  Country: US (occurrence: US)
  Receive Date: 20190509
  Receipt Date: 20240902
  Transmission Date: 20241016
  Serious: No
  Sender: TAKEDA
  Company Number: US-SHIRE-US201915055

PATIENT
  Age: 21 Year
  Sex: Female

DRUGS (2)
  1. VELAGLUCERASE ALFA [Suspect]
     Active Substance: VELAGLUCERASE ALFA
     Indication: Gaucher^s disease
     Dosage: 15 DOSAGE FORM, 2/WEEK
     Route: 042
     Dates: start: 20150702
  2. VELAGLUCERASE ALFA [Suspect]
     Active Substance: VELAGLUCERASE ALFA
     Dosage: UNK UNK, 2/WEEK
     Route: 042

REACTIONS (2)
  - Malaise [Not Recovered/Not Resolved]
  - Product dose omission issue [Not Recovered/Not Resolved]

NARRATIVE: CASE EVENT DATE: 20190506
